FAERS Safety Report 6572747-2 (Version None)
Quarter: 2010Q1

REPORT INFORMATION
  Report Type: 
  Country: None (occurrence: None)
  Receive Date: 20100205
  Receipt Date: 20100128
  Transmission Date: 20100710
  Serious: Yes (Hospitalization, Other)
  Sender: FDA-Public Use
  Company Number: PHHY2010FR05218

PATIENT
  Sex: Male

DRUGS (15)
  1. MYFORTIC [Suspect]
     Dosage: 360 MG, BID
     Route: 048
     Dates: end: 20090214
  2. EUCALCIC [Suspect]
     Dosage: 3 DF/DAY
     Dates: start: 20090210
  3. LASILIX [Suspect]
     Dosage: 125 MG, QD
     Dates: start: 20090210, end: 20090218
  4. ALLOPURINOL [Suspect]
     Dosage: 200 MG, UNK
     Dates: start: 20090210, end: 20090214
  5. LEXOMIL [Suspect]
     Dosage: 0.5 DF/DAY
     Dates: start: 20090210, end: 20090214
  6. METEOXANE [Suspect]
     Dosage: 3 DF/DAY
     Dates: start: 20090210, end: 20090214
  7. HYPERIUM [Suspect]
     Dosage: 2 MG, UNK
     Dates: start: 20090210
  8. PROGRAF [Concomitant]
     Dosage: 0.5 MG, QD
  9. CORTANCYL [Concomitant]
     Dosage: 5 MG, QD
  10. NEXIUM [Concomitant]
     Dosage: 40 MG, QD
  11. ASPEGIC 1000 [Concomitant]
     Dosage: 75 MG, QD
  12. ZEFFIX [Concomitant]
     Indication: HEPATITIS B
     Dosage: 100 MG/DAY
     Dates: start: 20080401
  13. BARACLUDE [Concomitant]
     Indication: HEPATITIS B
     Dosage: 1 MG/DAY
  14. ANTI-BHS IG [Concomitant]
     Indication: HEPATITIS B
     Dosage: UNK
     Dates: start: 20080401
  15. HEPSERA [Concomitant]

REACTIONS (20)
  - ALANINE AMINOTRANSFERASE INCREASED [None]
  - ARTHRALGIA [None]
  - ASPARTATE AMINOTRANSFERASE INCREASED [None]
  - ASPERGILLOSIS [None]
  - BLOOD ALKALINE PHOSPHATASE INCREASED [None]
  - BLOOD LACTATE DEHYDROGENASE INCREASED [None]
  - BRONCHOALVEOLAR LAVAGE ABNORMAL [None]
  - COUGH [None]
  - DECREASED APPETITE [None]
  - FANCONI SYNDROME [None]
  - FLUID OVERLOAD [None]
  - GENERAL PHYSICAL HEALTH DETERIORATION [None]
  - HEPATIC FUNCTION ABNORMAL [None]
  - HYPERTHERMIA [None]
  - INFECTION [None]
  - OEDEMA [None]
  - POLYARTHRITIS [None]
  - RENAL FAILURE ACUTE [None]
  - RESPIRATORY FAILURE [None]
  - WEIGHT DECREASED [None]
